FAERS Safety Report 7548902-1 (Version None)
Quarter: 2011Q2

REPORT INFORMATION
  Report Type: 
  Country: None (occurrence: None)
  Receive Date: 20110615
  Receipt Date: 20110610
  Transmission Date: 20111010
  Serious: Yes (Hospitalization, Other)
  Sender: FDA-Public Use
  Company Number: SK-PFIZER INC-2011127398

PATIENT
  Age: 57 Year
  Sex: Male

DRUGS (4)
  1. RANITAL [Concomitant]
     Dosage: UNK
  2. SUNITINIB MALATE [Suspect]
     Indication: RENAL CELL CARCINOMA
     Dosage: 50 MG, 1X/DAY
     Dates: start: 20081024
  3. CREON [Concomitant]
     Dosage: UNK
  4. TICLOPIDINE [Concomitant]
     Dosage: UNK

REACTIONS (7)
  - THROMBOSIS [None]
  - NEUTROPENIA [None]
  - LEUKOPENIA [None]
  - ANAEMIA [None]
  - THROMBOCYTOPENIA [None]
  - HYPERCREATINAEMIA [None]
  - PNEUMONIA [None]
